FAERS Safety Report 6474897-8 (Version None)
Quarter: 2009Q4

REPORT INFORMATION
  Report Type: 
  Country: None (occurrence: None)
  Receive Date: 20091204
  Receipt Date: 20091123
  Transmission Date: 20100525
  Serious: Yes (Hospitalization)
  Sender: FDA-Public Use
  Company Number: FR-GENENTECH-292365

PATIENT
  Sex: Female

DRUGS (10)
  1. RITUXIMAB [Suspect]
     Indication: LYMPHOMA
     Dosage: UNK
     Route: 065
     Dates: start: 20070201
  2. RITUXIMAB [Suspect]
     Dosage: 740 MG, UNK
     Route: 065
     Dates: start: 20080325
  3. RITUXIMAB [Suspect]
     Dosage: 600 MG, UNK
     Route: 065
     Dates: start: 20080520
  4. RITUXIMAB [Suspect]
     Dosage: 500 MG, UNK
     Route: 065
     Dates: start: 20090120
  5. FLUDARABINE [Concomitant]
     Indication: LYMPHOMA
     Dosage: 90 MG, UNK
     Route: 042
     Dates: start: 20080325
  6. FLUDARABINE [Concomitant]
     Dosage: 150 MG, UNK
     Route: 042
     Dates: start: 20080520
  7. FLUDARABINE [Concomitant]
     Dosage: 150 MG, UNK
     Route: 048
     Dates: start: 20080617
  8. CYCLOPHOSPHAMIDE [Concomitant]
     Indication: DRUG USE FOR UNKNOWN INDICATION
     Dosage: UNK
     Dates: end: 20070201
  9. VINCRISTINE [Concomitant]
     Indication: DRUG USE FOR UNKNOWN INDICATION
     Dosage: UNK
     Dates: end: 20070201
  10. PREDNISONE [Concomitant]
     Indication: DRUG USE FOR UNKNOWN INDICATION
     Dosage: UNK
     Dates: end: 20070201

REACTIONS (1)
  - COLITIS ULCERATIVE [None]
